FAERS Safety Report 8356036-1 (Version None)
Quarter: 2012Q2

REPORT INFORMATION
  Report Type: 
  Country: None (occurrence: None)
  Receive Date: 20120511
  Receipt Date: 20120511
  Transmission Date: 20120825
  Serious: Yes (Life-Threatening, Hospitalization)
  Sender: FDA-Public Use
  Company Number: None

PATIENT
  Age: 17 Year
  Sex: Female
  Weight: 90.7194 kg

DRUGS (4)
  1. LUPRON DEPOT [Suspect]
     Indication: ENDOMETRIOSIS
     Dosage: ONE SHOT PER MONTH IM
     Route: 030
     Dates: start: 20120301, end: 20120329
  2. LUPRON DEPOT [Suspect]
     Indication: UTERINE LEIOMYOMA
     Dosage: ONE SHOT PER MONTH IM
     Route: 030
     Dates: start: 20120301, end: 20120329
  3. LUPRON DEPOT [Suspect]
     Indication: ENDOMETRIOSIS
     Dosage: ONE SHOT PER MONTH IM
     Route: 030
     Dates: start: 20120401, end: 20120429
  4. LUPRON DEPOT [Suspect]
     Indication: UTERINE LEIOMYOMA
     Dosage: ONE SHOT PER MONTH IM
     Route: 030
     Dates: start: 20120401, end: 20120429

REACTIONS (7)
  - ABNORMAL BEHAVIOUR [None]
  - PERSONALITY CHANGE [None]
  - SWELLING FACE [None]
  - AFFECTIVE DISORDER [None]
  - DEPRESSION [None]
  - INTENTIONAL OVERDOSE [None]
  - SUICIDE ATTEMPT [None]
